FAERS Safety Report 18558998 (Version 2)
Quarter: 2020Q4

REPORT INFORMATION
  Report Type: Spontaneous
  Country: SK (occurrence: SK)
  Receive Date: 20201130
  Receipt Date: 20201208
  Transmission Date: 20210114
  Serious: Yes (Other)
  Sender: FDA-Public Use
  Company Number: SK-TEVA-2020-SK-1854520

PATIENT
  Sex: Female

DRUGS (1)
  1. MYOCET [Suspect]
     Active Substance: DOXORUBICIN
     Route: 065

REACTIONS (1)
  - Cardiotoxicity [Recovered/Resolved]
